FAERS Safety Report 18447727 (Version 3)
Quarter: 2020Q4

REPORT INFORMATION
  Report Type: Spontaneous
  Country: CO (occurrence: CO)
  Receive Date: 20201030
  Receipt Date: 20201201
  Transmission Date: 20210114
  Serious: Yes (Hospitalization, Other)
  Sender: FDA-Public Use
  Company Number: CO-EMD SERONO-9193816

PATIENT
  Age: 54 Year
  Sex: Female
  Weight: 75 kg

DRUGS (11)
  1. SANDOSTATIN [Suspect]
     Active Substance: OCTREOTIDE ACETATE
     Route: 030
     Dates: start: 20070708, end: 201605
  2. SANDOSTATIN [Suspect]
     Active Substance: OCTREOTIDE ACETATE
     Dosage: SANDOSTATIN LAR READYFILL SYRINGE (OCTREOTIDE WITH POLY(DL-LACTIDE-CO-GLYCOLIDE)) UNKNOWN
  3. SANDOSTATIN [Suspect]
     Active Substance: OCTREOTIDE ACETATE
     Dosage: SANDOSTATIN LAR VIAL ADAPTOR (OCTREOTIDE WITH POLY(DL-LACTIDE-CO-GLYCOLIDE)) UNKNOWN
  4. SANDOSTATIN [Suspect]
     Active Substance: OCTREOTIDE ACETATE
     Dosage: SANDOSTATIN LAR MONOJECT SAFETY NEEDLE (OCTREOTIDE WITH POLY(DL-LACTIDE-CO-GLYCOLIDE)) UNKNOWN
  5. CALCIUM + VIT D [Concomitant]
     Active Substance: CALCIUM\VITAMIN D
     Indication: PRODUCT USED FOR UNKNOWN INDICATION
  6. METFORMIN HYDROCHLORIDE. [Suspect]
     Active Substance: METFORMIN HYDROCHLORIDE
     Indication: GLUCOSE TOLERANCE IMPAIRED
     Route: 048
  7. LOSARTAN. [Concomitant]
     Active Substance: LOSARTAN
     Indication: PRODUCT USED FOR UNKNOWN INDICATION
  8. LOSARTAN POTASICO [Suspect]
     Active Substance: LOSARTAN
     Indication: HYPERTENSION
     Route: 048
  9. SANDOSTATIN [Suspect]
     Active Substance: OCTREOTIDE ACETATE
     Indication: ACROMEGALY
     Route: 030
     Dates: start: 200508
  10. SANDOSTATIN [Suspect]
     Active Substance: OCTREOTIDE ACETATE
     Dosage: EVERY 40 DAYS
     Route: 030
  11. LEVOTHYROXINE. [Concomitant]
     Active Substance: LEVOTHYROXINE
     Indication: PRODUCT USED FOR UNKNOWN INDICATION

REACTIONS (21)
  - Haemobilia [Unknown]
  - Spinal cord injury [Unknown]
  - Dyspnoea [Unknown]
  - Pancreatitis [Unknown]
  - Limb mass [Unknown]
  - Thyroid mass [Unknown]
  - Cholecystitis infective [Unknown]
  - Skin discolouration [Unknown]
  - Abdominal pain upper [Unknown]
  - Abdominal discomfort [Unknown]
  - Dyspepsia [Unknown]
  - Insulin-like growth factor increased [Unknown]
  - Cholelithiasis [Unknown]
  - Cortisol decreased [Unknown]
  - Diarrhoea [Unknown]
  - Gastrointestinal disorder [Unknown]
  - Osteochondritis [Unknown]
  - Nephrolithiasis [Unknown]
  - Abdominal pain [Unknown]
  - Depression [Unknown]
  - Blood growth hormone increased [Unknown]

NARRATIVE: CASE EVENT DATE: 2014
